FAERS Safety Report 9621042 (Version 3)
Quarter: 2013Q4

REPORT INFORMATION
  Report Type: Spontaneous
  Country: JP (occurrence: JP)
  Receive Date: 20131015
  Receipt Date: 20131111
  Transmission Date: 20140711
  Serious: Yes (Hospitalization, Other)
  Sender: FDA-Public Use
  Company Number: PHHY2013JP114676

PATIENT
  Sex: Male

DRUGS (4)
  1. DIOVAN [Suspect]
     Indication: CONGESTIVE CARDIOMYOPATHY
     Route: 048
  2. DIOVAN [Suspect]
     Dosage: UNK
     Route: 048
  3. LISINOPRIL [Suspect]
     Indication: CARDIAC FAILURE
  4. DIURETICS [Suspect]
     Indication: CONGESTIVE CARDIOMYOPATHY

REACTIONS (4)
  - Cardiac failure [Unknown]
  - Inappropriate antidiuretic hormone secretion [Recovered/Resolved]
  - Hyponatraemia [Recovered/Resolved]
  - Hypotension [Unknown]
